FAERS Safety Report 11213263 (Version 3)
Quarter: 2015Q3

REPORT INFORMATION
  Report Type: Spontaneous
  Country: BE (occurrence: BE)
  Receive Date: 20150623
  Receipt Date: 20150729
  Transmission Date: 20151125
  Serious: Yes (Hospitalization)
  Sender: FDA-Public Use
  Company Number: BE-GLAXOSMITHKLINE-BE2015GSK087074

PATIENT
  Age: 70 Year
  Sex: Male
  Weight: 96 kg

DRUGS (7)
  1. VOTRIENT [Suspect]
     Active Substance: PAZOPANIB HYDROCHLORIDE
     Indication: PRODUCT USED FOR UNKNOWN INDICATION
     Dosage: 400 MG, BID
     Dates: start: 201303, end: 20150617
  2. LANTUS [Concomitant]
     Active Substance: INSULIN GLARGINE
  3. FINASTERIDE. [Concomitant]
     Active Substance: FINASTERIDE
  4. GLURENORM [Concomitant]
  5. TRIBVIT [Concomitant]
  6. TAMSULOSINE [Concomitant]
     Active Substance: TAMSULOSIN HYDROCHLORIDE
     Dosage: 0.4 MG, UNK
  7. LIPITOR [Concomitant]
     Active Substance: ATORVASTATIN CALCIUM

REACTIONS (3)
  - Erythema multiforme [Recovered/Resolved]
  - Superinfection [Unknown]
  - Dermatitis [Recovered/Resolved]

NARRATIVE: CASE EVENT DATE: 20150602
